FAERS Safety Report 6171621-3 (Version None)
Quarter: 2009Q2

REPORT INFORMATION
  Report Type: 
  Country: None (occurrence: None)
  Receive Date: 20090424
  Receipt Date: 20090129
  Transmission Date: 20091009
  Serious: No
  Sender: FDA-Public Use
  Company Number: PRA1-2008-00033

PATIENT
  Age: 15 Year
  Sex: Female
  Weight: 67.1 kg

DRUGS (3)
  1. LISDEXAMFETAMINE DIMESYLATE VS PLACEBO (CODE NOT BROKEN) CAPSULE [Suspect]
     Indication: ATTENTION DEFICIT/HYPERACTIVITY DISORDER
  2. ACETAMINOPHEN [Concomitant]
  3. MOTRIN [Concomitant]

REACTIONS (1)
  - PREGNANCY [None]
